FAERS Safety Report 6036987-3 (Version None)
Quarter: 2009Q1

REPORT INFORMATION
  Report Type: 
  Country: None (occurrence: None)
  Receive Date: 20090114
  Receipt Date: 20080903
  Transmission Date: 20090719
  Serious: Yes (Other)
  Sender: FDA-Public Use
  Company Number: PHHO2008GB10919

PATIENT

DRUGS (1)
  1. SYNTOCINON [Suspect]
     Route: 064

REACTIONS (1)
  - SEPSIS NEONATAL [None]
